FAERS Safety Report 19934334 (Version 2)
Quarter: 2022Q3

REPORT INFORMATION
  Report Type: Report from Study
  Country: PH (occurrence: PH)
  Receive Date: 20211008
  Receipt Date: 20220711
  Transmission Date: 20221027
  Serious: Yes (Death, Other)
  Sender: FDA-Public Use
  Company Number: PH-BAXTER-2021BAX031663

PATIENT
  Age: 62 Year
  Sex: Female

DRUGS (2)
  1. DIANEAL [Suspect]
     Active Substance: CALCIUM CHLORIDE\DEXTROSE\MAGNESIUM CHLORIDE\SODIUM CHLORIDE\SODIUM LACTATE
     Indication: Peritoneal dialysis
     Dosage: 1900 ML, 3X A DAY
     Route: 033
  2. DIANEAL [Suspect]
     Active Substance: CALCIUM CHLORIDE\DEXTROSE\MAGNESIUM CHLORIDE\SODIUM CHLORIDE\SODIUM LACTATE
     Indication: Peritoneal dialysis
     Dosage: 1900 ML, 3X A DAY
     Route: 033

REACTIONS (3)
  - Chronic kidney disease [Fatal]
  - Haemorrhage [Not Recovered/Not Resolved]
  - Abdominal pain upper [Unknown]

NARRATIVE: CASE EVENT DATE: 20211006
